FAERS Safety Report 24730831 (Version 2)
Quarter: 2024Q4

REPORT INFORMATION
  Report Type: Report from Study
  Country: DE (occurrence: DE)
  Receive Date: 20241213
  Receipt Date: 20241217
  Transmission Date: 20250115
  Serious: Yes (Hospitalization)
  Sender: UCB
  Company Number: DE-UCBSA-2024064330

PATIENT
  Sex: Female

DRUGS (2)
  1. CERTOLIZUMAB PEGOL [Suspect]
     Active Substance: CERTOLIZUMAB PEGOL
     Indication: Product used for unknown indication
     Dosage: 400 MILLIGRAM
     Dates: start: 20190425, end: 20190523
  2. ETORICOXIB [Concomitant]
     Active Substance: ETORICOXIB
     Indication: Product used for unknown indication
     Dosage: 60 MILLIGRAM/ 90 MILLIGRAM/ 180 MILLIGRAM
     Dates: start: 20180801

REACTIONS (2)
  - Axial spondyloarthritis [Recovered/Resolved]
  - Respiratory tract infection viral [Unknown]

NARRATIVE: CASE EVENT DATE: 20191111
